FAERS Safety Report 24440245 (Version 3)
Quarter: 2024Q4

REPORT INFORMATION
  Report Type: Report from Study
  Country: US (occurrence: US)
  Receive Date: 20241016
  Receipt Date: 20241030
  Transmission Date: 20250114
  Serious: Yes (Hospitalization, Other)
  Sender: UCB
  Company Number: US-UCBSA-2024043471

PATIENT
  Age: 51 Year
  Sex: Female
  Weight: 61.235 kg

DRUGS (6)
  1. FINTEPLA [Suspect]
     Active Substance: FENFLURAMINE
     Indication: Lennox-Gastaut syndrome
     Dosage: 5.5 MILLILITER, 2X/DAY (BID)
     Dates: start: 20221010
  2. FINTEPLA [Suspect]
     Active Substance: FENFLURAMINE
     Dosage: 5.5 MILLILITER, 2X/DAY (BID)
     Dates: start: 20221011
  3. FINTEPLA [Suspect]
     Active Substance: FENFLURAMINE
     Dosage: 3.5 MILLILITER, 2X/DAY (BID) (DOSE TAPERED)
  4. FELBAMATE [Concomitant]
     Active Substance: FELBAMATE
     Indication: Product used for unknown indication
     Dosage: 8 MILLIGRAM, 2X/DAY (BID)
  5. FYCOMPA [Concomitant]
     Active Substance: PERAMPANEL
     Indication: Product used for unknown indication
     Dosage: UNK
  6. CLONAZEPAM [Concomitant]
     Active Substance: CLONAZEPAM
     Indication: Product used for unknown indication
     Dosage: 2 MILLIGRAM, 3X/DAY (TID)

REACTIONS (8)
  - Urinary tract infection [Not Recovered/Not Resolved]
  - Seizure [Not Recovered/Not Resolved]
  - Generalised tonic-clonic seizure [Unknown]
  - Myoclonic epilepsy [Unknown]
  - Status epilepticus [Unknown]
  - Vagal nerve stimulator implantation [Unknown]
  - Klebsiella infection [Not Recovered/Not Resolved]
  - Weight decreased [Not Recovered/Not Resolved]

NARRATIVE: CASE EVENT DATE: 20240917
